FAERS Safety Report 25012093 (Version 1)
Quarter: 2025Q1

REPORT INFORMATION
  Report Type: Spontaneous
  Country: US (occurrence: US)
  Receive Date: 20250226
  Receipt Date: 20250226
  Transmission Date: 20250408
  Serious: Yes (Other)
  Sender: CSL BEHRING
  Company Number: US-BEH-2025196982

PATIENT
  Age: 16 Year
  Sex: Female

DRUGS (4)
  1. HIZENTRA [Suspect]
     Active Substance: HUMAN IMMUNOGLOBULIN G
     Indication: Blood immunoglobulin A decreased
     Dosage: (2GM/10ML), QOW
     Route: 058
     Dates: start: 20231222
  2. AZATHIOPRINE [Concomitant]
     Active Substance: AZATHIOPRINE
  3. TACROLIMUS [Concomitant]
     Active Substance: TACROLIMUS
  4. TIROSINT [Concomitant]
     Active Substance: LEVOTHYROXINE SODIUM

REACTIONS (4)
  - Drug ineffective [Unknown]
  - Product dose omission issue [Unknown]
  - Product use issue [Unknown]
  - Therapy change [Unknown]

NARRATIVE: CASE EVENT DATE: 20250101
